FAERS Safety Report 4854290-1 (Version None)
Quarter: 2005Q4

REPORT INFORMATION
  Report Type: 
  Country: None (occurrence: None)
  Receive Date: 20051215
  Receipt Date: 20051206
  Transmission Date: 20060501
  Serious: Yes (Other)
  Sender: FDA-Public Use
  Company Number: US-SOLVAY-00205004056

PATIENT
  Age: 43 Year
  Sex: Female

DRUGS (4)
  1. EFFEXOR [Concomitant]
     Indication: ANXIETY
     Dosage: DAILY DOSE: 150 MILLIGRAM(S)
     Route: 048
     Dates: start: 20051007, end: 20051114
  2. EFFEXOR [Concomitant]
     Dosage: DAILY DOSE: 225 MILLIGRAM(S)
     Route: 048
     Dates: start: 20051115
  3. ESTROGEL [Suspect]
     Indication: OESTROGEN REPLACEMENT THERAPY
     Dosage: DAILY DOSE: 1.25 GRAM(S)
     Route: 062
     Dates: start: 20041001, end: 20050301
  4. ESTROGEL [Suspect]
     Dosage: DAILY DOSE: 1.25 GRAM(S)
     Route: 062
     Dates: start: 20050715

REACTIONS (2)
  - CONVULSION [None]
  - MIGRAINE [None]
